FAERS Safety Report 5084344-9 (Version None)
Quarter: 2006Q3

REPORT INFORMATION
  Report Type: 
  Country: None (occurrence: None)
  Receive Date: 20060821
  Receipt Date: 20060808
  Transmission Date: 20061208
  Serious: Yes (Death, Other)
  Sender: FDA-Public Use
  Company Number: AU-NOVOPROD-255966

PATIENT
  Age: 63 Year
  Sex: Female
  Weight: 63 kg

DRUGS (15)
  1. BLOOD CELLS, PACKED HUMAN [Concomitant]
     Indication: PREOPERATIVE CARE
     Dosage: 2 UNITS 24 HOURS PRE RFVIIA ADMINISTRATION
     Dates: start: 20060410
  2. BLOOD CELLS, PACKED HUMAN [Concomitant]
     Dosage: 2 UNITS IN BETWEEN RFVIIA DOSES
     Dates: start: 20060411
  3. BLOOD CELLS, PACKED HUMAN [Concomitant]
     Dosage: 7 UNITS 24 HOURS POST RFVIIA ADMINISTRATION
     Dates: start: 20060412
  4. FRESH FROZEN PLASMA [Concomitant]
     Indication: SURGERY
     Dosage: 5 UNITS 24 HOURS PRE RFVIIA ADMINISTRATION
     Dates: start: 20060410
  5. FRESH FROZEN PLASMA [Concomitant]
     Dosage: 0 UNITS IN BETWEEN R FVIIA DOSES
     Dates: start: 20060411
  6. FRESH FROZEN PLASMA [Concomitant]
     Dosage: 6 UNITS 24 HOURS POST RFVIIA ADMINISTRATION
     Dates: start: 20060412
  7. NOVOSEVEN [Suspect]
     Indication: SURGERY
     Dosage: 6 MG, SINGLE AT THEATRE
     Dates: start: 20060411
  8. NOVOSEVEN [Suspect]
     Dosage: 6 MG, SINGLE AT THEATRE
     Dates: start: 20060411
  9. CRYOPRECIPITATES [Concomitant]
     Indication: SURGERY
     Dosage: 10 U, SINGLE
     Dates: start: 20060410
  10. CRYOPRECIPITATES [Concomitant]
     Dosage: 7 UNITS IN BETWEEN RFVIIA DOSES
     Dates: start: 20060411
  11. CRYOPRECIPITATES [Concomitant]
     Dosage: 0 UNITS 24 HOURS POST RFVIIA
     Dates: start: 20060412
  12. PLATELETS [Concomitant]
     Indication: SURGERY
     Dosage: 10 UNITS 24 HOURS PRE RFVIIA ADMINISTRATION
     Dates: start: 20060410
  13. PLATELETS [Concomitant]
     Dosage: 5 UNITS IN BETWEEN RFVIIA DOSES
     Dates: start: 20060411
  14. PLATELETS [Concomitant]
     Dosage: 10 UNITS 24 HOURS POST RFVIIA ADMINISTRATION
     Dates: start: 20060412
  15. TRANEXAMIC ACID [Concomitant]
     Dosage: BEFORE FIRST RFVIIA DOSE
     Dates: start: 20060410

REACTIONS (3)
  - JUGULAR VEIN THROMBOSIS [None]
  - MULTI-ORGAN FAILURE [None]
  - UNEVALUABLE EVENT [None]
